FAERS Safety Report 5477120-6 (Version None)
Quarter: 2007Q3

REPORT INFORMATION
  Report Type: 
  Country: None (occurrence: None)
  Receive Date: 20070904
  Receipt Date: 20070509
  Transmission Date: 20080115
  Serious: No
  Sender: FDA-Public Use
  Company Number: PHEH2006US14932

PATIENT
  Age: 85 Year
  Sex: Female

DRUGS (2)
  1. ENABLEX [Suspect]
     Indication: URINARY INCONTINENCE
     Dosage: 7.5 MG, QD; 15 MG, QD
     Dates: end: 20070201
  2. ENABLEX [Suspect]
     Indication: URINARY INCONTINENCE
     Dosage: 7.5 MG, QD; 15 MG, QD
     Dates: start: 20070201, end: 20070502

REACTIONS (2)
  - CONSTIPATION [None]
  - DRUG INEFFECTIVE [None]
